FAERS Safety Report 7198881-4 (Version None)
Quarter: 2010Q4

REPORT INFORMATION
  Report Type: 
  Country: None (occurrence: None)
  Receive Date: 20101227
  Receipt Date: 20101221
  Transmission Date: 20110411
  Serious: Yes (Other)
  Sender: FDA-Public Use
  Company Number: US-ALLERGAN-1008209US

PATIENT
  Age: 62 Year
  Sex: Male
  Weight: 68.027 kg

DRUGS (5)
  1. ALPHAGAN [Suspect]
     Indication: GLAUCOMA
     Dosage: 1 GTT, QD
     Route: 047
  2. TRAVATAN Z [Suspect]
     Indication: GLAUCOMA
     Dosage: 1 GTT, BID
     Route: 047
  3. PAXIL [Concomitant]
     Indication: DEPRESSION
     Dosage: 15 MG, BID
     Route: 048
  4. KLONOPIN [Concomitant]
     Indication: ANXIETY
     Dosage: 1 MG, TID
     Route: 048
  5. CLOMIPRAMINE HCL [Concomitant]
     Dosage: 100 MG, QHS
     Route: 048

REACTIONS (11)
  - EYE INFLAMMATION [None]
  - EYE IRRITATION [None]
  - EYE PAIN [None]
  - EYE PRURITUS [None]
  - EYE SWELLING [None]
  - FOREIGN BODY SENSATION IN EYES [None]
  - HEADACHE [None]
  - LACRIMATION INCREASED [None]
  - OCULAR HYPERAEMIA [None]
  - PHOTOPHOBIA [None]
  - RETINITIS [None]
